FAERS Safety Report 15543744 (Version 1)
Quarter: 2018Q4

REPORT INFORMATION
  Report Type: Report from Study
  Country: AR (occurrence: AR)
  Receive Date: 20181023
  Receipt Date: 20181023
  Transmission Date: 20190205
  Serious: Yes (Other)
  Sender: FDA-Public Use
  Company Number: AR-SA-2018SA288753

PATIENT
  Sex: Female

DRUGS (1)
  1. ALEMTUZUMAB [Suspect]
     Active Substance: ALEMTUZUMAB
     Indication: MULTIPLE SCLEROSIS
     Dosage: UNK , UNK
     Route: 041
     Dates: start: 20180718, end: 20180720

REACTIONS (4)
  - Lymphopenia [Recovered/Resolved]
  - Pharyngitis streptococcal [Recovered/Resolved]
  - Neutropenia [Recovered/Resolved]
  - Tonsillitis [Recovered/Resolved]

NARRATIVE: CASE EVENT DATE: 20180806
